FAERS Safety Report 16232591 (Version 1)
Quarter: 2019Q2

REPORT INFORMATION
  Report Type: Report from Study
  Country: US (occurrence: US)
  Receive Date: 20190424
  Receipt Date: 20190424
  Transmission Date: 20190711
  Serious: No
  Sender: FDA-Public Use
  Company Number: PHEH2019US017492

PATIENT
  Sex: Female
  Weight: 92.9 kg

DRUGS (1)
  1. GLATOPA [Suspect]
     Active Substance: GLATIRAMER ACETATE
     Indication: MULTIPLE SCLEROSIS
     Dosage: 20 MG, QD, ROTATING SITES
     Route: 058

REACTIONS (3)
  - Muscle spasms [Not Recovered/Not Resolved]
  - Skin induration [Not Recovered/Not Resolved]
  - Injection site nodule [Not Recovered/Not Resolved]
